FAERS Safety Report 19744031 (Version 1)
Quarter: 2021Q3

REPORT INFORMATION
  Report Type: Spontaneous
  Country: US (occurrence: US)
  Receive Date: 20210823
  Receipt Date: 20210823
  Transmission Date: 20211014
  Serious: Yes (Death)
  Sender: FDA-Public Use
  Company Number: None

PATIENT
  Age: 78 Year
  Sex: Female
  Weight: 78.3 kg

DRUGS (1)
  1. LUMASON [Suspect]
     Active Substance: SULFUR HEXAFLUORIDE
     Indication: CARDIAC FUNCTION TEST
     Route: 042

REACTIONS (5)
  - Contrast media reaction [None]
  - Cardiac arrest [None]
  - Cardio-respiratory arrest [None]
  - Malaise [None]
  - Retching [None]

NARRATIVE: CASE EVENT DATE: 20210823
